FAERS Safety Report 5820728-6 (Version None)
Quarter: 2008Q3

REPORT INFORMATION
  Report Type: 
  Country: None (occurrence: None)
  Receive Date: 20080724
  Receipt Date: 20080314
  Transmission Date: 20090109
  Serious: No
  Sender: FDA-Public Use
  Company Number: A0717378A

PATIENT
  Sex: Female

DRUGS (5)
  1. AVANDIA [Suspect]
     Route: 065
  2. THEOPHYLLINE [Concomitant]
  3. ASPIRIN [Concomitant]
  4. CRANBERRY CAPSULES [Concomitant]
  5. UNKNOWN MEDICATION [Concomitant]

REACTIONS (1)
  - WEIGHT INCREASED [None]
